FAERS Safety Report 12322468 (Version 2)
Quarter: 2016Q2

REPORT INFORMATION
  Report Type: Spontaneous
  Country: US (occurrence: US)
  Receive Date: 20160502
  Receipt Date: 20160510
  Transmission Date: 20160815
  Serious: No
  Sender: FDA-Public Use
  Company Number: US-ACTELION-A-US2014-110559

PATIENT
  Age: 41 Year
  Sex: Female

DRUGS (2)
  1. ADVIL [Concomitant]
     Active Substance: IBUPROFEN
     Dosage: 100 MG, UNK
  2. VALCHLOR [Suspect]
     Active Substance: MECHLORETHAMINE
     Indication: MYCOSIS FUNGOIDES
     Dosage: 0.016% TOPICAL GEL, QD
     Route: 061
     Dates: start: 20141024, end: 201412

REACTIONS (3)
  - Treatment noncompliance [Unknown]
  - No therapeutic response [Unknown]
  - Drug ineffective [Not Recovered/Not Resolved]
